FAERS Safety Report 20068962 (Version 1)
Quarter: 2021Q4

REPORT INFORMATION
  Report Type: Other
  Country: US (occurrence: None)
  Receive Date: 20211115
  Receipt Date: 20211115
  Transmission Date: 20220303
  Serious: Yes (Other)
  Sender: FDA-Public Use
  Company Number: US-ROCHE-2956079

PATIENT
  Age: 40 Year

DRUGS (6)
  1. RITUXIMAB [Suspect]
     Active Substance: RITUXIMAB
     Indication: Hairy cell leukaemia
     Route: 065
  2. BENDAMUSTINE [Suspect]
     Active Substance: BENDAMUSTINE
     Indication: Hairy cell leukaemia
     Route: 065
  3. DABRAFENIB [Suspect]
     Active Substance: DABRAFENIB
     Indication: Hairy cell leukaemia
     Route: 065
  4. TRAMETINIB [Suspect]
     Active Substance: TRAMETINIB
     Indication: Hairy cell leukaemia
     Route: 066
  5. PENTOSTATIN [Suspect]
     Active Substance: PENTOSTATIN
     Indication: Hairy cell leukaemia
     Route: 065
  6. MOXETUMOMAB PASUDOTOX [Suspect]
     Active Substance: MOXETUMOMAB PASUDOTOX
     Indication: Hairy cell leukaemia
     Dosage: EVERY OTHER DAY FOR 3 DOSES
     Route: 065
     Dates: start: 2007

REACTIONS (3)
  - Cytopenia [Unknown]
  - Disease progression [Unknown]
  - Drug ineffective [Unknown]

NARRATIVE: CASE EVENT DATE: 20190101
